FAERS Safety Report 10245112 (Version 1)
Quarter: 2014Q2

REPORT INFORMATION
  Report Type: Spontaneous
  Country: IT (occurrence: IT)
  Receive Date: 20140618
  Receipt Date: 20140618
  Transmission Date: 20141212
  Serious: Yes (Hospitalization, Other)
  Sender: FDA-Public Use
  Company Number: IT-PFIZER INC-2014167790

PATIENT
  Age: 40 Year
  Sex: Female
  Weight: 60 kg

DRUGS (5)
  1. METHYLPREDNISOLONE SODIUM SUCCINATE [Suspect]
     Dosage: 1 G, DAILY
     Route: 042
     Dates: start: 20140503, end: 20140512
  2. GILENYA [Suspect]
     Indication: RELAPSING-REMITTING MULTIPLE SCLEROSIS
     Dosage: 1 DF, DAILY
     Route: 048
     Dates: start: 20111108, end: 20140307
  3. PREDNISONE [Suspect]
     Dosage: 25 MG, DAILY
     Route: 048
     Dates: start: 20140513, end: 20140517
  4. CIPROFLOXACIN [Concomitant]
     Indication: LOBAR PNEUMONIA
     Dosage: 500 MG, UNK
     Route: 048
     Dates: start: 20140313, end: 20140320
  5. FLUCONAZOLE [Concomitant]
     Indication: CANDIDURIA
     Dosage: 150 MG, UNK
     Route: 048
     Dates: start: 20140313, end: 20140319

REACTIONS (3)
  - Partial seizures [Recovering/Resolving]
  - Cerebral toxoplasmosis [Recovering/Resolving]
  - Relapsing-remitting multiple sclerosis [Unknown]
